FAERS Safety Report 7930134-6 (Version None)
Quarter: 2011Q4

REPORT INFORMATION
  Report Type: 
  Country: None (occurrence: None)
  Receive Date: 20111121
  Receipt Date: 20111115
  Transmission Date: 20120403
  Serious: Yes (Other)
  Sender: FDA-Public Use
  Company Number: FR-PFIZER INC-2011279357

PATIENT
  Sex: Female

DRUGS (2)
  1. PEDIATRIC ADVIL [Suspect]
     Indication: PAIN
     Dosage: 1 DF, 3X/DAY
  2. PEDIATRIC ADVIL [Suspect]
     Indication: PYREXIA

REACTIONS (1)
  - HYPOTHERMIA [None]
